FAERS Safety Report 10182144 (Version 3)
Quarter: 2014Q2

REPORT INFORMATION
  Report Type: Report from Study
  Country: CA (occurrence: CA)
  Receive Date: 20140520
  Receipt Date: 20140521
  Transmission Date: 20141212
  Serious: Yes (Other)
  Sender: FDA-Public Use
  Company Number: CA-ROCHE-1218574

PATIENT
  Age: 61 Year
  Sex: Female
  Weight: 70.3 kg

DRUGS (11)
  1. RITUXAN [Suspect]
     Indication: RHEUMATOID ARTHRITIS
     Dosage: FREQUENCY : DAY 1 AND DAY 15.
     Route: 042
     Dates: start: 20121120
  2. LEVOTHYROXINE [Concomitant]
  3. PREDNISONE [Concomitant]
  4. KETOPROFEN [Concomitant]
  5. FOLIC ACID [Concomitant]
  6. METHOTREXATE [Concomitant]
  7. FLECAINIDE [Concomitant]
  8. HYDROMORPHONE [Concomitant]
  9. COVERSYL [Concomitant]
  10. VITAMIN B12 [Concomitant]
  11. MORPHINE [Concomitant]

REACTIONS (2)
  - Sleep disorder [Unknown]
  - Arthralgia [Not Recovered/Not Resolved]
